FAERS Safety Report 4481452-8 (Version None)
Quarter: 2004Q3

REPORT INFORMATION
  Report Type: 
  Country: None (occurrence: None)
  Receive Date: 20040923
  Receipt Date: 20040611
  Transmission Date: 20050211
  Serious: No
  Sender: FDA-Public Use
  Company Number: USA040669887

PATIENT
  Age: 80 Year
  Sex: Female
  Weight: 61 kg

DRUGS (6)
  1. FORTEO [Suspect]
     Indication: OSTEOPOROSIS
     Dosage: 20 UG/1 DAY
     Dates: start: 20040101
  2. CALCIUM [Concomitant]
  3. PREMARIN [Concomitant]
  4. IRON [Concomitant]
  5. VITAMIN B6 [Concomitant]
  6. THIAMINE HCL [Concomitant]

REACTIONS (2)
  - INJECTION SITE HAEMORRHAGE [None]
  - NERVOUSNESS [None]
